FAERS Safety Report 8117121-2 (Version None)
Quarter: 2012Q1

REPORT INFORMATION
  Report Type: 
  Country: None (occurrence: None)
  Receive Date: 20120206
  Receipt Date: 20120201
  Transmission Date: 20120608
  Serious: Yes (Hospitalization)
  Sender: FDA-Public Use
  Company Number: US-GILEAD-2012-0049135

PATIENT
  Sex: Female

DRUGS (6)
  1. LETAIRIS [Suspect]
     Indication: MEDIASTINAL FIBROSIS
  2. SILDENAFIL [Concomitant]
     Dosage: UNK UNKNOWN, UNK
  3. LETAIRIS [Suspect]
     Indication: PULMONARY HYPERTENSION
     Dosage: 10 MG, UNK
     Route: 048
     Dates: start: 20100303
  4. LETAIRIS [Suspect]
     Indication: KYPHOSCOLIOSIS
  5. LETAIRIS [Suspect]
     Indication: PULMONARY ARTERY STENOSIS
  6. LETAIRIS [Suspect]
     Indication: MEDIASTINITIS

REACTIONS (1)
  - HAEMOPTYSIS [None]
